FAERS Safety Report 6369050-2 (Version None)
Quarter: 2009Q3

REPORT INFORMATION
  Report Type: 
  Country: None (occurrence: None)
  Receive Date: 20090918
  Receipt Date: 20090918
  Transmission Date: 20100115
  Serious: Yes (Other)
  Sender: FDA-Public Use
  Company Number: None

PATIENT
  Age: 72 Year
  Sex: Female
  Weight: 66.2252 kg

DRUGS (1)
  1. ETODOLAC [Suspect]
     Indication: PROCEDURAL PAIN
     Dosage: 200 MG EVERY 6 HOURS
     Dates: start: 20090818, end: 20090825

REACTIONS (3)
  - ABASIA [None]
  - PAIN IN EXTREMITY [None]
  - PRODUCT SUBSTITUTION ISSUE [None]
